FAERS Safety Report 5733545-2 (Version None)
Quarter: 2008Q2

REPORT INFORMATION
  Report Type: 
  Country: None (occurrence: None)
  Receive Date: 20080509
  Receipt Date: 20080505
  Transmission Date: 20081010
  Serious: Yes (Hospitalization)
  Sender: FDA-Public Use
  Company Number: DE-WYE-H03941308

PATIENT
  Sex: Male

DRUGS (2)
  1. RAPAMUNE [Suspect]
     Indication: PROPHYLAXIS AGAINST TRANSPLANT REJECTION
     Dosage: DOSE NOT SPECIFIED, FREQUENCY ONE TIME A DAY
     Route: 065
     Dates: start: 20070925
  2. MYCOPHENOLATE MOFETIL [Suspect]
     Indication: IMMUNOSUPPRESSION
     Dosage: DOSE NOT SPECIFIED, FREQUENCY TWO TIMES DAILY
     Route: 065
     Dates: start: 20070207

REACTIONS (1)
  - GENERAL PHYSICAL HEALTH DETERIORATION [None]
